FAERS Safety Report 7092995-5 (Version None)
Quarter: 2010Q4

REPORT INFORMATION
  Report Type: 
  Country: None (occurrence: None)
  Receive Date: 20101110
  Receipt Date: 20090226
  Transmission Date: 20110411
  Serious: No
  Sender: FDA-Public Use
  Company Number: US-KINGPHARMUSA00001-K200900205

PATIENT
  Sex: Male

DRUGS (1)
  1. VIROPTIC [Suspect]
     Indication: HERPES VIRUS INFECTION
     Dosage: UNK
     Route: 031

REACTIONS (2)
  - DRUG INEFFECTIVE [None]
  - INCORRECT STORAGE OF DRUG [None]
